FAERS Safety Report 4713416-0 (Version None)
Quarter: 2005Q3

REPORT INFORMATION
  Report Type: 
  Country: None (occurrence: None)
  Receive Date: 20050711
  Receipt Date: 20050623
  Transmission Date: 20060218
  Serious: Yes (Other)
  Sender: FDA-Public Use
  Company Number: 215580

PATIENT
  Age: 61 Year
  Sex: Female
  Weight: 46 kg

DRUGS (6)
  1. RITUXAN [Suspect]
     Indication: NON-HODGKIN'S LYMPHOMA
     Dosage: 490 MG, QD, INTRAVENOUS; SEE IMAGE
     Route: 042
     Dates: start: 20040729, end: 20040910
  2. RITUXAN [Suspect]
     Indication: NON-HODGKIN'S LYMPHOMA
     Dosage: 490 MG, QD, INTRAVENOUS; SEE IMAGE
     Route: 042
     Dates: start: 20040930, end: 20041101
  3. CYCLOPHOSPHAMIDE [Suspect]
     Indication: NON-HODGKIN'S LYMPHOMA
     Dates: start: 20040730, end: 20041112
  4. DOXORUBICIN HCL [Suspect]
     Indication: NON-HODGKIN'S LYMPHOMA
     Dates: start: 20040730, end: 20041112
  5. VINCRISTINE [Suspect]
     Indication: NON-HODGKIN'S LYMPHOMA
     Dates: start: 20040730, end: 20041112
  6. PREDNISONE [Suspect]
     Indication: NON-HODGKIN'S LYMPHOMA
     Dates: start: 20040730, end: 20041112

REACTIONS (4)
  - ALANINE AMINOTRANSFERASE INCREASED [None]
  - NEUTROPHIL COUNT DECREASED [None]
  - PYREXIA [None]
  - WHITE BLOOD CELL COUNT DECREASED [None]
